FAERS Safety Report 11624265 (Version 1)
Quarter: 2015Q4

REPORT INFORMATION
  Report Type: Spontaneous
  Country: IN (occurrence: IN)
  Receive Date: 20151013
  Receipt Date: 20151013
  Transmission Date: 20160304
  Serious: Yes (Death, Congenital Anomaly, Other)
  Sender: FDA-Public Use
  Company Number: IN-IPCA LABORATORIES LIMITED-IPC201510-000654

PATIENT
  Age: 38 Week
  Sex: Male
  Weight: 2.48 kg

DRUGS (1)
  1. WARFARIN [Suspect]
     Active Substance: WARFARIN

REACTIONS (6)
  - Respiratory failure [Fatal]
  - Patent ductus arteriosus [Not Recovered/Not Resolved]
  - Apnoea neonatal [Unknown]
  - Congenital tracheomalacia [Not Recovered/Not Resolved]
  - Foetal warfarin syndrome [Not Recovered/Not Resolved]
  - Foetal exposure during pregnancy [Unknown]
